FAERS Safety Report 24275110 (Version 2)
Quarter: 2024Q3

REPORT INFORMATION
  Report Type: Spontaneous
  Country: JP (occurrence: JP)
  Receive Date: 20240902
  Receipt Date: 20240911
  Transmission Date: 20241017
  Serious: Yes (Other)
  Sender: SANOFI AVENTIS
  Company Number: JP-SA-2024SA251098

PATIENT
  Sex: Female

DRUGS (1)
  1. DUPIXENT [Suspect]
     Active Substance: DUPILUMAB
     Indication: Dermatitis atopic
     Dosage: UNK, QOW
     Route: 058
     Dates: start: 20190910

REACTIONS (3)
  - Psoriatic arthropathy [Recovering/Resolving]
  - Pain [Recovering/Resolving]
  - Dermatitis psoriasiform [Unknown]

NARRATIVE: CASE EVENT DATE: 20231201
